FAERS Safety Report 10388109 (Version 2)
Quarter: 2014Q3

REPORT INFORMATION
  Report Type: Report from Study
  Country: BR (occurrence: BR)
  Receive Date: 20140815
  Receipt Date: 20140828
  Transmission Date: 20150326
  Serious: Yes (Other)
  Sender: FDA-Public Use
  Company Number: PHHY2014BR101731

PATIENT
  Sex: Male
  Weight: 73 kg

DRUGS (5)
  1. PRADAXA [Suspect]
     Active Substance: DABIGATRAN ETEXILATE MESYLATE
     Indication: COAGULOPATHY
     Dosage: 2 DF QD (1 TABLET IN THE MORNING AND 1 TABLET AT NIGHT)
     Route: 048
  2. EXELON PATCH [Suspect]
     Active Substance: RIVASTIGMINE
     Indication: MEMORY IMPAIRMENT
     Dosage: 4.6 MG, QD (5CM EVERY DAY)
     Route: 062
     Dates: start: 2012, end: 2013
  3. STALEVO [Suspect]
     Active Substance: CARBIDOPA\ENTACAPONE\LEVODOPA
     Indication: PARKINSON^S DISEASE
     Dosage: 1 TABLET AT 12 PM, 1 TABLET AT 19 PM AND 1 TABLET AT 22 PM
     Route: 048
  4. SIFROL ER [Suspect]
     Active Substance: PRAMIPEXOLE
     Indication: PARKINSON^S DISEASE
     Dosage: 1.5 DF QD (0.5 TABLET AT LUNCH AND 1 TABLET AT NIGHT)
     Route: 048
  5. PROLOPA [Suspect]
     Active Substance: BENSERAZIDE\LEVODOPA
     Indication: PARKINSON^S DISEASE
     Dosage: 1.25 DF QD (1/4 TABLET AT 12 PM, 1/4  TABLET IN THE AFTERNOON AND 3/4 AT NIGHT)
     Route: 048

REACTIONS (3)
  - Weight decreased [Not Recovered/Not Resolved]
  - Pulmonary embolism [Recovered/Resolved]
  - Dizziness [Recovered/Resolved]
